FAERS Safety Report 7608389-7 (Version None)
Quarter: 2011Q3

REPORT INFORMATION
  Report Type: 
  Country: None (occurrence: None)
  Receive Date: 20110713
  Receipt Date: 20110713
  Transmission Date: 20111222
  Serious: Yes (Other)
  Sender: FDA-Public Use
  Company Number: None

PATIENT
  Age: 82 Year
  Sex: Male
  Weight: 83.0083 kg

DRUGS (1)
  1. NIFEDIPINE [Suspect]
     Indication: HYPERTENSION
     Dosage: 60 MG - 2 TABS AT BREAKFAST

REACTIONS (4)
  - MUSCULAR WEAKNESS [None]
  - PRODUCT SUBSTITUTION ISSUE [None]
  - HEADACHE [None]
  - DIZZINESS [None]
